FAERS Safety Report 25785692 (Version 1)
Quarter: 2025Q3

REPORT INFORMATION
  Report Type: Spontaneous
  Country: EU (occurrence: EU)
  Receive Date: 20250910
  Receipt Date: 20250910
  Transmission Date: 20251021
  Serious: Yes (Death)
  Sender: BIOGEN
  Company Number: EU-BIOGEN-2025BI01323232

PATIENT
  Age: 78 Year
  Sex: Female

DRUGS (1)
  1. TOFERSEN [Suspect]
     Active Substance: TOFERSEN
     Indication: Amyotrophic lateral sclerosis
     Route: 050
     Dates: start: 2022

REACTIONS (1)
  - Amyotrophic lateral sclerosis [Fatal]
